FAERS Safety Report 20495782 (Version 1)
Quarter: 2022Q1

REPORT INFORMATION
  Report Type: Other
  Country: US (occurrence: None)
  Receive Date: 20220221
  Receipt Date: 20220221
  Transmission Date: 20220423
  Serious: Yes (Other)
  Sender: FDA-Public Use
  Company Number: US-ROCHE-3027029

PATIENT
  Age: 7 Month
  Sex: Female

DRUGS (5)
  1. RITUXIMAB [Suspect]
     Active Substance: RITUXIMAB
     Indication: Graft versus host disease
     Dosage: 4 DOSES SPACED WEEKLY
     Route: 065
  2. CIDOFOVIR [Concomitant]
     Active Substance: CIDOFOVIR
  3. TACROLIMUS [Concomitant]
     Active Substance: TACROLIMUS
     Indication: Prophylaxis against graft versus host disease
  4. SIROLIMUS [Concomitant]
     Active Substance: SIROLIMUS
     Indication: Graft versus host disease
  5. RUXOLITINIB [Concomitant]
     Active Substance: RUXOLITINIB
     Indication: Graft versus host disease

REACTIONS (1)
  - Immunoglobulins decreased [Unknown]
